FAERS Safety Report 24169080 (Version 2)
Quarter: 2024Q3

REPORT INFORMATION
  Report Type: Spontaneous
  Country: US (occurrence: US)
  Receive Date: 20240802
  Receipt Date: 20240826
  Transmission Date: 20241016
  Serious: No
  Sender: ALEXION PHARMACEUTICALS
  Company Number: US-ALXN-202407USA001855US

PATIENT
  Sex: Female

DRUGS (1)
  1. SOLIRIS [Suspect]
     Active Substance: ECULIZUMAB
     Indication: Neuromyelitis optica spectrum disorder
     Dosage: 1200 MILLIGRAM, Q2W
     Route: 065
     Dates: start: 202404

REACTIONS (12)
  - Gait disturbance [Unknown]
  - Chest pain [Unknown]
  - Nasal congestion [Unknown]
  - Chest discomfort [Unknown]
  - Diarrhoea [Unknown]
  - Wheezing [Unknown]
  - Migraine [Unknown]
  - Muscle spasms [Unknown]
  - Dizziness [Unknown]
  - Hyperhidrosis [Unknown]
  - Vomiting [Unknown]
  - Dyspnoea [Unknown]

NARRATIVE: CASE EVENT DATE: 20240430
